FAERS Safety Report 21578584 (Version 1)
Quarter: 2022Q4

REPORT INFORMATION
  Report Type: Report from Study
  Country: US (occurrence: US)
  Receive Date: 20221110
  Receipt Date: 20221110
  Transmission Date: 20230112
  Serious: Yes (Hospitalization, Other)
  Sender: FDA-Public Use
  Company Number: US-002147023-NVSC2022US248015

PATIENT
  Sex: Male

DRUGS (2)
  1. KISQALI [Suspect]
     Active Substance: RIBOCICLIB
     Indication: Breast cancer
     Dosage: 600 MG, QD
     Route: 048
  2. FEMARA [Suspect]
     Active Substance: LETROZOLE
     Indication: Breast cancer
     Dosage: 2.5 MG, QD
     Route: 048

REACTIONS (5)
  - Prostatomegaly [Recovering/Resolving]
  - Anuria [Recovered/Resolved]
  - Urinary bladder haemorrhage [Recovered/Resolved]
  - Urinary retention [Recovered/Resolved]
  - Asthenia [Recovering/Resolving]
